FAERS Safety Report 10222988 (Version 1)
Quarter: 2014Q2

REPORT INFORMATION
  Report Type: Report from Study
  Country: AT (occurrence: AT)
  Receive Date: 20140607
  Receipt Date: 20140607
  Transmission Date: 20141212
  Serious: Yes (Other)
  Sender: FDA-Public Use
  Company Number: PHHY2014AT069349

PATIENT
  Sex: 0

DRUGS (2)
  1. TASIGNA [Suspect]
     Dosage: 400 MG, BID
  2. TASIGNA [Suspect]
     Dosage: 400 MG, BID, LESS THAN 400MG BID

REACTIONS (1)
  - Musculoskeletal disorder [Unknown]
